FAERS Safety Report 6566875-5 (Version None)
Quarter: 2010Q1

REPORT INFORMATION
  Report Type: 
  Country: None (occurrence: None)
  Receive Date: 20100202
  Receipt Date: 20100122
  Transmission Date: 20100710
  Serious: Yes (Hospitalization)
  Sender: FDA-Public Use
  Company Number: B0630213A

PATIENT
  Age: 38 Year
  Sex: Female

DRUGS (3)
  1. LAMIVUDINE [Suspect]
     Indication: HIV INFECTION
     Dosage: 300MG PER DAY
  2. STAVUDINE [Suspect]
     Indication: HIV INFECTION
     Dosage: 60MG PER DAY
  3. EFAVIRENZ [Suspect]
     Indication: HIV INFECTION
     Dosage: 600MG PER DAY

REACTIONS (10)
  - ANAEMIA [None]
  - GENERAL PHYSICAL HEALTH DETERIORATION [None]
  - HEPATIC ENZYME INCREASED [None]
  - HEPATOMEGALY [None]
  - IMMUNE RECONSTITUTION SYNDROME [None]
  - LYMPH NODE TUBERCULOSIS [None]
  - LYMPHADENOPATHY [None]
  - PRODUCTIVE COUGH [None]
  - PYREXIA [None]
  - TUBERCULOSIS [None]
